FAERS Safety Report 5429668-8 (Version None)
Quarter: 2007Q3

REPORT INFORMATION
  Report Type: 
  Country: None (occurrence: None)
  Receive Date: 20070829
  Receipt Date: 20070821
  Transmission Date: 20080115
  Serious: Yes (Hospitalization)
  Sender: FDA-Public Use
  Company Number: US-SHR-US-2007-031359

PATIENT
  Sex: Female

DRUGS (6)
  1. LEUKINE [Suspect]
     Dosage: 500 A?G, 1X/DAY
     Route: 058
     Dates: start: 20070818, end: 20070820
  2. TAXOL [Concomitant]
     Dates: start: 20070817, end: 20070817
  3. CARBOPLATIN [Concomitant]
     Dates: start: 20070817, end: 20070817
  4. ANZEMET [Concomitant]
     Dates: start: 20070817, end: 20070817
  5. BENADRYL ^WARNER-LAMBERT^               /USA/ [Concomitant]
     Dates: start: 20070817, end: 20070817
  6. ZANTAC 150 [Concomitant]
     Dates: start: 20070817, end: 20070817

REACTIONS (4)
  - DIZZINESS [None]
  - DYSPNOEA [None]
  - RESPIRATORY ARREST [None]
  - SYNCOPE [None]
